FAERS Safety Report 10526327 (Version 1)
Quarter: 2014Q4

REPORT INFORMATION
  Report Type: Spontaneous
  Country: US (occurrence: US)
  Receive Date: 20141019
  Receipt Date: 20141019
  Transmission Date: 20150528
  Serious: No
  Sender: FDA-Public Use
  Company Number: US-B.I. PHARMACEUTICALS,INC./RIDGEFIELD-2014-BI-48466BP

PATIENT
  Sex: Female

DRUGS (2)
  1. SULFONYLUREA [Concomitant]
     Active Substance: UNSPECIFIED INGREDIENT
     Indication: TYPE 2 DIABETES MELLITUS
     Route: 065
  2. JARDIANCE [Suspect]
     Active Substance: EMPAGLIFLOZIN
     Indication: TYPE 2 DIABETES MELLITUS
     Dosage: 10 MG
     Route: 065

REACTIONS (2)
  - Glossodynia [Not Recovered/Not Resolved]
  - Paraesthesia oral [Not Recovered/Not Resolved]
